FAERS Safety Report 4492712-9 (Version None)
Quarter: 2004Q4

REPORT INFORMATION
  Report Type: 
  Country: None (occurrence: None)
  Receive Date: 20041104
  Receipt Date: 20041026
  Transmission Date: 20050328
  Serious: Yes (Hospitalization)
  Sender: FDA-Public Use
  Company Number: 200418260US

PATIENT
  Sex: Female

DRUGS (2)
  1. KETEK [Suspect]
     Indication: CYSTITIS
     Route: 048
  2. KETEK [Suspect]
     Indication: URINARY TRACT INFECTION
     Route: 048

REACTIONS (3)
  - ASTHENIA [None]
  - CARDIAC DISORDER [None]
  - RENAL FAILURE [None]
